FAERS Safety Report 7897888-9 (Version None)
Quarter: 2011Q4

REPORT INFORMATION
  Report Type: 
  Country: None (occurrence: None)
  Receive Date: 20111107
  Receipt Date: 20111101
  Transmission Date: 20120403
  Serious: Yes (Life-Threatening, Other)
  Sender: FDA-Public Use
  Company Number: LB-SANOFI-AVENTIS-2011SA071914

PATIENT
  Age: 60 Year
  Sex: Female

DRUGS (4)
  1. SOLOSTAR [Suspect]
  2. LANTUS [Suspect]
     Route: 058
  3. SOLOSTAR [Suspect]
  4. APIDRA SOLOSTAR [Suspect]
     Route: 058

REACTIONS (2)
  - HYPOGLYCAEMIA [None]
  - WRONG DRUG ADMINISTERED [None]
